FAERS Safety Report 17027252 (Version 1)
Quarter: 2019Q4

REPORT INFORMATION
  Report Type: Report from Study
  Country: US (occurrence: US)
  Receive Date: 20191113
  Receipt Date: 20191113
  Transmission Date: 20200122
  Serious: Yes (Hospitalization)
  Sender: FDA-Public Use
  Company Number: US-EISAI MEDICAL RESEARCH-EC-2019-054585

PATIENT
  Sex: Female

DRUGS (7)
  1. LENVIMA [Suspect]
     Active Substance: LENVATINIB
     Route: 048
     Dates: start: 20190815, end: 20191106
  2. LENVIMA [Suspect]
     Active Substance: LENVATINIB
     Route: 048
     Dates: start: 2019, end: 20190620
  3. LENVIMA [Suspect]
     Active Substance: LENVATINIB
     Route: 048
     Dates: start: 201907, end: 201908
  4. LENVIMA [Suspect]
     Active Substance: LENVATINIB
     Indication: RENAL CANCER
     Route: 048
     Dates: start: 20190301, end: 2019
  5. LENVIMA [Suspect]
     Active Substance: LENVATINIB
     Route: 048
     Dates: start: 20190715, end: 201907
  6. AFINITOR [Suspect]
     Active Substance: EVEROLIMUS
     Indication: PRODUCT USED FOR UNKNOWN INDICATION
     Dates: end: 20191106
  7. LISINOPRIL. [Suspect]
     Active Substance: LISINOPRIL
     Indication: PRODUCT USED FOR UNKNOWN INDICATION
     Dosage: FREQUENCY NOT PROVIDED
     Route: 065
     Dates: end: 2019

REACTIONS (20)
  - Cancer pain [Recovering/Resolving]
  - Anaemia [Unknown]
  - Cough [Recovering/Resolving]
  - Lymphadenopathy [Not Recovered/Not Resolved]
  - Acne [Not Recovered/Not Resolved]
  - Abdominal pain upper [Recovered/Resolved]
  - Gingival disorder [Not Recovered/Not Resolved]
  - Nausea [Recovered/Resolved]
  - Anal incontinence [Not Recovered/Not Resolved]
  - Insomnia [Recovering/Resolving]
  - Vomiting [Recovered/Resolved]
  - Diarrhoea [Recovering/Resolving]
  - Aphthous ulcer [Recovered/Resolved]
  - Abdominal discomfort [Recovered/Resolved]
  - Platelet count decreased [Unknown]
  - Pneumonia [Unknown]
  - Blood pressure increased [Recovering/Resolving]
  - Erythema [Not Recovered/Not Resolved]
  - Cystitis [Not Recovered/Not Resolved]
  - Gingival swelling [Not Recovered/Not Resolved]

NARRATIVE: CASE EVENT DATE: 2019
